FAERS Safety Report 14091718 (Version 1)
Quarter: 2017Q4

REPORT INFORMATION
  Report Type: Report from Study
  Country: IR (occurrence: IR)
  Receive Date: 20171016
  Receipt Date: 20171016
  Transmission Date: 20180321
  Serious: Yes (Other)
  Sender: FDA-Public Use
  Company Number: IR-ROCHE-2004724

PATIENT
  Age: 67 Year
  Sex: Female

DRUGS (1)
  1. BEVACIZUMAB. [Suspect]
     Active Substance: BEVACIZUMAB
     Indication: RETINAL VEIN OCCLUSION
     Dosage: 0.25 MG/0.05 ML
     Route: 050

REACTIONS (1)
  - Macular detachment [Unknown]
